FAERS Safety Report 8811130 (Version 1)
Quarter: 2012Q4

REPORT INFORMATION
  Report Type: Spontaneous
  Country: US (occurrence: None)
  Receive Date: 20120925
  Receipt Date: 20120925
  Transmission Date: 20130627
  Serious: Yes (Other)
  Sender: FDA-Public Use
  Company Number: None

PATIENT
  Age: 80 Year
  Sex: Female
  Weight: 62.14 kg

DRUGS (1)
  1. SOLARAZE [Suspect]
     Indication: KERATOSIS
     Dosage: Aug 13th to Sept 11th
Two a day

REACTIONS (2)
  - Alopecia [None]
  - Eye swelling [None]
